FAERS Safety Report 9298575 (Version 1)
Quarter: 2013Q2

REPORT INFORMATION
  Report Type: Spontaneous
  Country: GB (occurrence: GB)
  Receive Date: 20130520
  Receipt Date: 20130520
  Transmission Date: 20140414
  Serious: Yes (Other)
  Sender: FDA-Public Use
  Company Number: GB-ROCHE-1226424

PATIENT
  Age: 77 Year
  Sex: Female

DRUGS (4)
  1. LUCENTIS [Suspect]
     Indication: AGE-RELATED MACULAR DEGENERATION
     Route: 050
     Dates: start: 20121031
  2. LUCENTIS [Suspect]
     Route: 050
     Dates: start: 20121215
  3. LUCENTIS [Suspect]
     Route: 050
     Dates: start: 20130116
  4. AMLODIPINE [Concomitant]

REACTIONS (4)
  - Transient ischaemic attack [Recovered/Resolved]
  - Cardiac murmur [Unknown]
  - Atrial fibrillation [Unknown]
  - Aphasia [Recovered/Resolved]
